FAERS Safety Report 6465154-4 (Version None)
Quarter: 2009Q4

REPORT INFORMATION
  Report Type: 
  Country: None (occurrence: None)
  Receive Date: 20091119
  Receipt Date: 20090910
  Transmission Date: 20100525
  Serious: No
  Sender: FDA-Public Use
  Company Number: WAES0909USA01447

PATIENT
  Age: 14 Year
  Sex: Male

DRUGS (1)
  1. JANUVIA [Suspect]
     Dosage: 300 MG/1X/PO
     Route: 048
     Dates: start: 20090901, end: 20090901

REACTIONS (4)
  - ACCIDENTAL DRUG INTAKE BY CHILD [None]
  - ACCIDENTAL OVERDOSE [None]
  - DISCOMFORT [None]
  - NAUSEA [None]
